FAERS Safety Report 4535741-9 (Version None)
Quarter: 2004Q4

REPORT INFORMATION
  Report Type: 
  Country: None (occurrence: None)
  Receive Date: 20041223
  Receipt Date: 20040130
  Transmission Date: 20050328
  Serious: No
  Sender: FDA-Public Use
  Company Number: US-GLAXOSMITHKLINE-A0495939A

PATIENT
  Age: 75 Year
  Sex: Male

DRUGS (3)
  1. FLONASE [Suspect]
     Indication: EAR INFECTION
     Dosage: 2SPR PER DAY
     Route: 045
     Dates: start: 20040129, end: 20040129
  2. PLENDIL [Concomitant]
  3. LASIX [Concomitant]

REACTIONS (1)
  - HEADACHE [None]
